FAERS Safety Report 19478932 (Version 2)
Quarter: 2021Q3

REPORT INFORMATION
  Report Type: Spontaneous
  Country: US (occurrence: US)
  Receive Date: 20210701
  Receipt Date: 20210812
  Transmission Date: 20211014
  Serious: No
  Sender: FDA-Public Use
  Company Number: US-ASTRAZENECA-2021A504941

PATIENT
  Sex: Female
  Weight: 70.3 kg

DRUGS (1)
  1. PULMICORT FLEXHALER [Suspect]
     Active Substance: BUDESONIDE
     Indication: ASTHMA
     Dosage: 180 MG 2 PUFFS AT NIGHT
     Route: 055

REACTIONS (7)
  - Incorrect dose administered [Unknown]
  - Wheezing [Unknown]
  - Sleep disorder [Unknown]
  - Cough [Unknown]
  - Fatigue [Not Recovered/Not Resolved]
  - Haemorrhoidal haemorrhage [Unknown]
  - Device delivery system issue [Unknown]
